FAERS Safety Report 5167551-6 (Version None)
Quarter: 2006Q4

REPORT INFORMATION
  Report Type: 
  Country: None (occurrence: None)
  Receive Date: 20060830
  Receipt Date: 20060522
  Transmission Date: 20070319
  Serious: No
  Sender: FDA-Public Use
  Company Number: 225439

PATIENT
  Age: 42 Year
  Sex: Male
  Weight: 102 kg

DRUGS (1)
  1. XOLAIR [Suspect]
     Indication: DRUG USE FOR UNKNOWN INDICATION
     Dosage: 450 MG, SUBCUTANEOUS
     Route: 058
     Dates: start: 20060419, end: 20060522

REACTIONS (2)
  - ERYTHEMA [None]
  - SWELLING FACE [None]
